FAERS Safety Report 24067862 (Version 1)
Quarter: 2024Q3

REPORT INFORMATION
  Report Type: Spontaneous
  Country: US (occurrence: US)
  Receive Date: 20240710
  Receipt Date: 20240710
  Transmission Date: 20241016
  Serious: Yes (Hospitalization, Other)
  Sender: AUROBINDO
  Company Number: US-EVWEB-AUR-APL-2014-02260

PATIENT
  Age: 79 Year
  Sex: Male

DRUGS (2)
  1. CIPROFLOXACIN [Suspect]
     Active Substance: CIPROFLOXACIN
     Indication: Pneumonia
     Dosage: UNK UNK,UNK,
     Route: 065
  2. DILTIAZEM [Concomitant]
     Active Substance: DILTIAZEM
     Indication: Hypertension
     Dosage: UNK UNK,UNK,
     Route: 065

REACTIONS (8)
  - Acute generalised exanthematous pustulosis [Recovering/Resolving]
  - Rash [Recovering/Resolving]
  - Rash papular [Recovering/Resolving]
  - Pustule [Recovering/Resolving]
  - Pruritus [Recovering/Resolving]
  - Pain [Recovering/Resolving]
  - Body temperature increased [Recovering/Resolving]
  - Leukocytosis [Recovering/Resolving]
